FAERS Safety Report 19255627 (Version 5)
Quarter: 2021Q3

REPORT INFORMATION
  Report Type: Spontaneous
  Country: PL (occurrence: PL)
  Receive Date: 20210514
  Receipt Date: 20210731
  Transmission Date: 20211014
  Serious: Yes (Hospitalization, Other)
  Sender: FDA-Public Use
  Company Number: PL-AUROBINDO-AUR-APL-2021-018602

PATIENT
  Age: 76 Year
  Sex: Female

DRUGS (68)
  1. FENTANYL. [Suspect]
     Active Substance: FENTANYL
     Indication: PAIN
     Dosage: 3600 MICROGRAM, DAILY
     Route: 062
  2. FENTANYL. [Suspect]
     Active Substance: FENTANYL
     Dosage: 400 MICROGRAM, 4 PATCHES OF 100 ?G / H EVERY 72 HOURS, 4 DOSAGE FOR 3 DAY
     Route: 062
  3. HYDROXYZINE [Suspect]
     Active Substance: HYDROXYZINE HYDROCHLORIDE
     Indication: PRODUCT USED FOR UNKNOWN INDICATION
     Dosage: 10 MILLIGRAM, ONCE A DAY PER NIGHT
     Route: 065
  4. OXYCODONE [Suspect]
     Active Substance: OXYCODONE
     Indication: PAIN
     Dosage: UNK
     Route: 065
  5. BISOCARD [Concomitant]
     Active Substance: BISOPROLOL
     Indication: PRODUCT USED FOR UNKNOWN INDICATION
     Dosage: 0.5 DOSAGE FORM, ONCE A DAY (2.5 MG DAILY)
     Route: 048
  6. INHIBACE [Concomitant]
     Active Substance: CILAZAPRIL ANHYDROUS
     Indication: PRODUCT USED FOR UNKNOWN INDICATION
     Dosage: 1 DOSAGE FORM, TWO TIMES A DAY (5 MILLIGRAM 2 X 1)
     Route: 048
  7. VENLAFAXINE [Suspect]
     Active Substance: VENLAFAXINE HYDROCHLORIDE
     Indication: MIXED ANXIETY AND DEPRESSIVE DISORDER
     Dosage: UNK
     Route: 065
  8. QUETIAPINE. [Suspect]
     Active Substance: QUETIAPINE
     Indication: PRODUCT USED FOR UNKNOWN INDICATION
     Dosage: 25 MILLIGRAM, ONCE A DAY PER NIGHT
     Route: 065
  9. QUETIAPINE. [Suspect]
     Active Substance: QUETIAPINE
     Dosage: 50 MILLIGRAM, ONCE A DAY, 1 X 2 TABLETS FOR NIGHT
     Route: 065
  10. TAPENTADOL [Suspect]
     Active Substance: TAPENTADOL
     Indication: ANALGESIC INTERVENTION SUPPORTIVE THERAPY
  11. BISOCARD [Concomitant]
     Active Substance: BISOPROLOL
     Dosage: 1 X ? OF A 5 MG TABLET
     Route: 048
  12. CAPTOPRIL. [Concomitant]
     Active Substance: CAPTOPRIL
     Indication: PRODUCT USED FOR UNKNOWN INDICATION
     Dosage: 25 MILLIGRAM ADHOC
     Route: 048
  13. KALIPOZ [Concomitant]
     Active Substance: POTASSIUM CHLORIDE
     Indication: PRODUCT USED FOR UNKNOWN INDICATION
     Dosage: 1 DOSAGE FORM, ONCE A DAY
     Route: 048
  14. LIOTON [Concomitant]
     Indication: PRODUCT USED FOR UNKNOWN INDICATION
     Dosage: UNK, 1000
     Route: 061
  15. MILURIT [Concomitant]
     Active Substance: ALLOPURINOL
     Dosage: 150 MILLIGRAM, ONCE A DAY
     Route: 065
  16. MIZODIN [Concomitant]
     Dosage: UNK
     Route: 048
  17. NITRENDIPINA [Concomitant]
     Dosage: 10 MILLIGRAM, ONCE A DAY
     Route: 065
  18. NITRENDIPINA [Concomitant]
     Dosage: 1 X ? OF A 10 MG TABLET
     Route: 048
  19. TORECAN [Concomitant]
     Active Substance: THIETHYLPERAZINE MALATE
     Indication: PRODUCT USED FOR UNKNOWN INDICATION
     Dosage: 1 DOSAGE FORM, ONCE A DAY
     Route: 048
  20. EFFENTORA [Suspect]
     Active Substance: FENTANYL CITRATE
     Dosage: 5 DOSAGE FORM, DAILY
  21. MORPHINE [Suspect]
     Active Substance: MORPHINE
     Indication: PAIN
     Dosage: UNK, CONTROLLED RELEASE
     Route: 065
  22. DULOXETINE. [Concomitant]
     Active Substance: DULOXETINE
     Dosage: 60 MILLIGRAM IN MORNING
     Route: 065
  23. DUSPATALIN RETARD [Concomitant]
     Indication: PRODUCT USED FOR UNKNOWN INDICATION
     Dosage: 1 DOSAGE FORM, TWO TIMES A DAY
     Route: 048
  24. FLEGAMINA [Concomitant]
     Active Substance: BROMHEXINE HYDROCHLORIDE
     Indication: PRODUCT USED FOR UNKNOWN INDICATION
     Dosage: 1 DOSAGE FORM, ONCE A DAY 8 MG ONCE A DAY
     Route: 048
  25. MIZODIN [Concomitant]
     Indication: PRODUCT USED FOR UNKNOWN INDICATION
     Dosage: 250 MILLIGRAM, TWO TIMES A DAY
     Route: 048
  26. NITRENDIPINA [Concomitant]
     Indication: PRODUCT USED FOR UNKNOWN INDICATION
     Dosage: 0.5 DOSAGE FORM, ONCE A DAY
     Route: 048
  27. AMITRIPTYLINE [Suspect]
     Active Substance: AMITRIPTYLINE
     Indication: MIXED ANXIETY AND DEPRESSIVE DISORDER
     Dosage: UNK
     Route: 065
  28. FENTANYL. [Suspect]
     Active Substance: FENTANYL
     Dosage: 75 MICROGRAM/HR TO 3  4 OF THE PATCH
     Route: 062
  29. LORAZEPAM. [Suspect]
     Active Substance: LORAZEPAM
     Indication: MIXED ANXIETY AND DEPRESSIVE DISORDER
     Dosage: UNK
     Route: 065
  30. TAPENTADOL [Suspect]
     Active Substance: TAPENTADOL
     Indication: PAIN
     Dosage: UNK
     Route: 065
  31. BUPRENORPHINE. [Concomitant]
     Active Substance: BUPRENORPHINE
     Indication: PRODUCT USED FOR UNKNOWN INDICATION
     Dosage: 35 MICROGRAM PER HOUR
     Route: 062
  32. LUTEINA [Concomitant]
     Indication: PRODUCT USED FOR UNKNOWN INDICATION
     Dosage: 1 DOSAGE FORM, ONCE A DAY (50 MG ONCE A DAY)
     Route: 060
  33. NO?SPA FORTE [Concomitant]
     Active Substance: DROTAVERINE HYDROCHLORIDE
     Indication: PRODUCT USED FOR UNKNOWN INDICATION
     Dosage: 1 DOSAGE FORM, TWO TIMES A DAY
     Route: 048
  34. ULGIX LAXI [Concomitant]
     Indication: PRODUCT USED FOR UNKNOWN INDICATION
     Dosage: 1 DOSAGE FORM, 3 TIMES A DAY
     Route: 048
  35. CHLORPROTIXEN [Suspect]
     Active Substance: CHLORPROTHIXENE HYDROCHLORIDE
     Indication: MIXED ANXIETY AND DEPRESSIVE DISORDER
     Dosage: 15 MILLIGRAM, TWO TIMES A DAY
     Route: 065
  36. EFFENTORA [Suspect]
     Active Substance: FENTANYL CITRATE
     Indication: PAIN
     Dosage: 12 DOSAGE FORM, DAILY 4800 MG PER DAY
     Route: 002
  37. PREGABALIN. [Suspect]
     Active Substance: PREGABALIN
     Dosage: 300 MICROGRAM, ONCE A DAY (75 MG IN THE MORNING AND 75 MG IN THE EVENING)
     Route: 048
  38. TIANESAL [Suspect]
     Active Substance: TIANEPTINE SODIUM
     Indication: MIXED ANXIETY AND DEPRESSIVE DISORDER
     Dosage: 12.5 MILLIGRAM, 3 TIMES A DAY
     Route: 065
  39. MEMOTROPIL [Concomitant]
     Active Substance: PIRACETAM
     Indication: PRODUCT USED FOR UNKNOWN INDICATION
     Dosage: 1 DOSAGE FORM, TWO TIMES A DAY
     Route: 048
  40. SIMETHICONE (DIMETHICONE) [Concomitant]
     Active Substance: DIMETHICONE
     Indication: PRODUCT USED FOR UNKNOWN INDICATION
     Dosage: 2 DOSAGE FORM, TWO TIMES A DAY (2X2)
     Route: 048
  41. CHLORPROTIXEN [Suspect]
     Active Substance: CHLORPROTHIXENE HYDROCHLORIDE
     Dosage: 15 MILLIGRAM, ONCE A DAY
     Route: 065
  42. EFFENTORA [Suspect]
     Active Substance: FENTANYL CITRATE
     Indication: ANALGESIC INTERVENTION SUPPORTIVE THERAPY
     Dosage: 400 MICROGRAM, TWO TIMES A DAY
  43. FENTANYL. [Suspect]
     Active Substance: FENTANYL
     Indication: ANALGESIC INTERVENTION SUPPORTIVE THERAPY
     Dosage: 150 MICROGRAM/HR 1 PATCH EVERY 72 HOURS.
     Route: 062
  44. OXYCODONE [Suspect]
     Active Substance: OXYCODONE
     Indication: ANALGESIC INTERVENTION SUPPORTIVE THERAPY
  45. MORPHINE [Suspect]
     Active Substance: MORPHINE
     Indication: ANALGESIC INTERVENTION SUPPORTIVE THERAPY
  46. TOLPERISONE [Concomitant]
     Active Substance: TOLPERISONE
     Indication: MYALGIA
     Dosage: UNK
     Route: 065
  47. TORECAN [Concomitant]
     Active Substance: THIETHYLPERAZINE MALATE
     Dosage: 6.5 MILLIGRAM, ONCE A DAY
     Route: 065
  48. VITAMIN D3 [Concomitant]
     Active Substance: CHOLECALCIFEROL
     Dosage: 4000 INTERNATIONAL UNIT, ONCE A DAY
     Route: 048
  49. SERTRALINE [Suspect]
     Active Substance: SERTRALINE HYDROCHLORIDE
     Indication: MIXED ANXIETY AND DEPRESSIVE DISORDER
     Dosage: UNK
     Route: 065
  50. EFFENTORA [Suspect]
     Active Substance: FENTANYL CITRATE
     Dosage: UNK, REDUCED BY 1 TABLET EVERY 2 WEEKS
  51. EFFENTORA [Suspect]
     Active Substance: FENTANYL CITRATE
     Dosage: UNK
     Route: 048
  52. FENTANYL. [Suspect]
     Active Substance: FENTANYL
     Indication: PAIN
     Dosage: UNK
     Route: 045
  53. FENTANYL. [Suspect]
     Active Substance: FENTANYL
     Indication: ANALGESIC INTERVENTION SUPPORTIVE THERAPY
  54. BISOCARD [Concomitant]
     Active Substance: BISOPROLOL
     Dosage: 5 MILLIGRAM, ONCE A DAY
     Route: 065
  55. LIDOCAINE. [Concomitant]
     Active Substance: LIDOCAINE
     Indication: PAIN
     Dosage: 18 DOSAGE FORM
     Route: 042
  56. POTASSIUM CHLORIDE. [Concomitant]
     Active Substance: POTASSIUM CHLORIDE
     Indication: PRODUCT USED FOR UNKNOWN INDICATION
     Dosage: UNK 1X1
     Route: 048
  57. RENNIE [Concomitant]
     Indication: PRODUCT USED FOR UNKNOWN INDICATION
     Dosage: 1 DOSAGE FORM, TWO TIMES A DAY
     Route: 048
  58. UROSEPT [Concomitant]
     Indication: PRODUCT USED FOR UNKNOWN INDICATION
     Dosage: 1 DOSAGE FORM, TWO TIMES A DAY
     Route: 048
  59. VITAMIN D3 [Concomitant]
     Active Substance: CHOLECALCIFEROL
     Indication: PRODUCT USED FOR UNKNOWN INDICATION
     Dosage: 1 DOSAGE FORM, ONCE A DAY
     Route: 048
  60. EFFENTORA [Suspect]
     Active Substance: FENTANYL CITRATE
     Dosage: 1 DOSAGE FORM, DAILY
  61. PREGABALIN. [Suspect]
     Active Substance: PREGABALIN
     Indication: PAIN
     Dosage: 75 MICROGRAM, TWO TIMES A DAY (75 MG IN THE MORNING AND 75 MG IN THE EVENING)
     Route: 048
  62. DIURESIN [Concomitant]
     Active Substance: INDAPAMIDE
     Indication: PRODUCT USED FOR UNKNOWN INDICATION
     Dosage: 1 DOSAGE FORM, ONCE A DAY
     Route: 048
  63. DULOXETINE. [Concomitant]
     Active Substance: DULOXETINE
     Indication: PRODUCT USED FOR UNKNOWN INDICATION
     Dosage: 30 MILLIGRAM IN MORNING
     Route: 065
  64. MILURIT [Concomitant]
     Active Substance: ALLOPURINOL
     Indication: PRODUCT USED FOR UNKNOWN INDICATION
     Dosage: 1 DOSAGE FORM, ONCE A DAY (300 MG PER DAY)
     Route: 048
  65. MILURIT [Concomitant]
     Active Substance: ALLOPURINOL
     Dosage: 1 X ? OF A 300 MG TABLET
     Route: 048
  66. PENTOXIFYLLINE. [Concomitant]
     Active Substance: PENTOXIFYLLINE
     Indication: PAIN
     Dosage: UNK
     Route: 065
  67. STRUCTUM [Concomitant]
     Indication: PRODUCT USED FOR UNKNOWN INDICATION
     Dosage: 1 DOSAGE FORM, TWO TIMES A DAY (500 MG TWO TIMES A DAY)
     Route: 048
  68. TRAUMON [Concomitant]
     Active Substance: ETOFENAMATE
     Indication: PRODUCT USED FOR UNKNOWN INDICATION
     Dosage: UNK
     Route: 061

REACTIONS (19)
  - Mental disorder [Unknown]
  - Drug ineffective [Unknown]
  - Affective disorder [Recovered/Resolved]
  - Intentional product misuse [Unknown]
  - Pain [Unknown]
  - Obstruction [Unknown]
  - Drug tolerance decreased [Unknown]
  - Drug intolerance [Recovered/Resolved]
  - Product use in unapproved indication [Unknown]
  - Drug withdrawal syndrome [Unknown]
  - Drug dependence [Unknown]
  - Withdrawal syndrome [Unknown]
  - Asthenia [Unknown]
  - Hypotension [Unknown]
  - Drug interaction [Unknown]
  - Intentional product use issue [Unknown]
  - Contraindicated product administered [Unknown]
  - Constipation [Unknown]
  - Drug use disorder [Unknown]
